FAERS Safety Report 13601562 (Version 2)
Quarter: 2017Q2

REPORT INFORMATION
  Report Type: Spontaneous
  Country: US (occurrence: US)
  Receive Date: 20170601
  Receipt Date: 20170622
  Transmission Date: 20170830
  Serious: No
  Sender: FDA-Public Use
  Company Number: US-ASTRAZENECA-2017SE55258

PATIENT
  Age: 22808 Day
  Sex: Female
  Weight: 90.7 kg

DRUGS (1)
  1. BYDUREON [Suspect]
     Active Substance: EXENATIDE
     Indication: TYPE 2 DIABETES MELLITUS
     Route: 058
     Dates: start: 201701

REACTIONS (4)
  - Disturbance in attention [Unknown]
  - Wrong technique in device usage process [Unknown]
  - Frustration tolerance decreased [Unknown]
  - Device issue [Unknown]

NARRATIVE: CASE EVENT DATE: 20170522
